FAERS Safety Report 17350071 (Version 1)
Quarter: 2020Q1

REPORT INFORMATION
  Report Type: Spontaneous
  Country: CA (occurrence: SG)
  Receive Date: 20200130
  Receipt Date: 20200130
  Transmission Date: 20200409
  Serious: Yes (Hospitalization, Other)
  Sender: FDA-Public Use
  Company Number: CA-AMGEN-SGPSP2020013968

PATIENT
  Age: 77 Year
  Sex: Male
  Weight: 77 kg

DRUGS (35)
  1. PROLIA [Suspect]
     Active Substance: DENOSUMAB
     Dosage: 60 MILLIGRAM, Q6MO
     Route: 058
     Dates: start: 20170516
  2. APIXABAN [Concomitant]
     Active Substance: APIXABAN
  3. RABEPRAZOLE [Concomitant]
     Active Substance: RABEPRAZOLE
  4. ZOPICLONE [Concomitant]
     Active Substance: ZOPICLONE
  5. BETASERC [Concomitant]
     Active Substance: BETAHISTINE
  6. SUBLINOX [Concomitant]
     Active Substance: ZOLPIDEM TARTRATE
  7. PROLIA [Suspect]
     Active Substance: DENOSUMAB
     Dosage: 60 MILLIGRAM, Q6MO
     Route: 058
     Dates: start: 20161116
  8. AVAMYS [Concomitant]
     Active Substance: FLUTICASONE FUROATE
  9. HYDROCORTISONE. [Concomitant]
     Active Substance: HYDROCORTISONE
  10. XARELTO [Concomitant]
     Active Substance: RIVAROXABAN
  11. DIAZEPAM. [Concomitant]
     Active Substance: DIAZEPAM
  12. ECTOSONE [Concomitant]
  13. ELTROXIN [Concomitant]
     Active Substance: LEVOTHYROXINE
  14. RIVAROXABAN [Concomitant]
     Active Substance: RIVAROXABAN
  15. PROLIA [Suspect]
     Active Substance: DENOSUMAB
     Dosage: 60 MILLIGRAM, Q6MO
     Route: 058
     Dates: start: 20150525
  16. PROLIA [Suspect]
     Active Substance: DENOSUMAB
     Dosage: 60 MILLIGRAM, Q6MO
     Route: 058
     Dates: start: 20180516
  17. LIPITOR [Concomitant]
     Active Substance: ATORVASTATIN CALCIUM
  18. DESLORATADINE. [Concomitant]
     Active Substance: DESLORATADINE
  19. SUNITON [Concomitant]
     Active Substance: ACETAMINOPHEN\ORPHENADRINE CITRATE
  20. PROLIA [Suspect]
     Active Substance: DENOSUMAB
     Dosage: 60 MILLIGRAM, Q6MO
     Route: 058
     Dates: start: 20130517
  21. PROLIA [Suspect]
     Active Substance: DENOSUMAB
     Dosage: 60 MILLIGRAM, Q6MO
     Route: 058
     Dates: start: 20171113
  22. METOCLOPRAMIDE. [Concomitant]
     Active Substance: METOCLOPRAMIDE
  23. PROLIA [Suspect]
     Active Substance: DENOSUMAB
     Dosage: 60 MILLIGRAM, Q6MO
     Route: 058
     Dates: start: 20141118
  24. PROLIA [Suspect]
     Active Substance: DENOSUMAB
     Dosage: 60 MILLIGRAM, Q6MO
     Route: 058
     Dates: start: 20160517
  25. PROLIA [Suspect]
     Active Substance: DENOSUMAB
     Dosage: 60 MILLIGRAM, Q6MO
     Route: 058
     Dates: start: 20190502
  26. SYNTHROID [Concomitant]
     Active Substance: LEVOTHYROXINE SODIUM
  27. ATORVASTATIN [Concomitant]
     Active Substance: ATORVASTATIN
  28. SERC [THIORIDAZINE] [Concomitant]
  29. IMOVANE [Concomitant]
     Active Substance: ZOPICLONE
  30. PROLIA [Suspect]
     Active Substance: DENOSUMAB
     Indication: OSTEOPOROSIS
     Dosage: 60 MILLIGRAM, Q6MO
     Route: 058
     Dates: start: 20120518
  31. PROLIA [Suspect]
     Active Substance: DENOSUMAB
     Dosage: 60 MILLIGRAM, Q6MO
     Route: 058
     Dates: start: 20191106
  32. PARIET [Concomitant]
     Active Substance: RABEPRAZOLE SODIUM
  33. ELIQUIS [Concomitant]
     Active Substance: APIXABAN
  34. FLOMAX [Concomitant]
     Active Substance: TAMSULOSIN HYDROCHLORIDE
  35. CORTEF [Concomitant]
     Active Substance: HYDROCORTISONE

REACTIONS (9)
  - Central nervous system lesion [Unknown]
  - Eye disorder [Unknown]
  - Urinary retention [Unknown]
  - Diplopia [Unknown]
  - Eyelid ptosis [Unknown]
  - Visual impairment [Unknown]
  - Cystitis [Unknown]
  - Headache [Unknown]
  - Eye movement disorder [Unknown]

NARRATIVE: CASE EVENT DATE: 2015
